FAERS Safety Report 7337741-2 (Version None)
Quarter: 2011Q1

REPORT INFORMATION
  Report Type: 
  Country: None (occurrence: None)
  Receive Date: 20110228
  Receipt Date: 20110210
  Transmission Date: 20110831
  Serious: Yes (Death)
  Sender: FDA-Public Use
  Company Number: DSA_44935_2011

PATIENT

DRUGS (1)
  1. TETRABENAZINE 12.5 MG [Suspect]
     Indication: HUNTINGTON'S DISEASE
     Dosage: DF, ORAL
     Route: 048

REACTIONS (13)
  - VOMITING [None]
  - NYSTAGMUS [None]
  - TOXICITY TO VARIOUS AGENTS [None]
  - IRRITABILITY [None]
  - SOMNOLENCE [None]
  - MUSCLE TWITCHING [None]
  - SKIN WARM [None]
  - RESPIRATORY RATE INCREASED [None]
  - BLOOD GLUCOSE INCREASED [None]
  - CLUMSINESS [None]
  - CONVULSION [None]
  - ACCIDENTAL DRUG INTAKE BY CHILD [None]
  - HEART RATE INCREASED [None]
